FAERS Safety Report 11254505 (Version 1)
Quarter: 2015Q3

REPORT INFORMATION
  Report Type: Spontaneous
  Country: US (occurrence: None)
  Receive Date: 20150708
  Receipt Date: 20150708
  Transmission Date: 20151125
  Serious: No
  Sender: FDA-Public Use
  Company Number: None

PATIENT
  Age: 82 Year
  Sex: Male
  Weight: 90.72 kg

DRUGS (6)
  1. CRESTOR [Suspect]
     Active Substance: ROSUVASTATIN CALCIUM
     Indication: BLOOD CHOLESTEROL INCREASED
     Route: 048
     Dates: start: 201002, end: 20150428
  2. CRESTOR [Suspect]
     Active Substance: ROSUVASTATIN CALCIUM
     Indication: CAROTID ARTERY OCCLUSION
     Route: 048
     Dates: start: 201002, end: 20150428
  3. RAMIPRIL. [Concomitant]
     Active Substance: RAMIPRIL
  4. CRESTOR [Suspect]
     Active Substance: ROSUVASTATIN CALCIUM
     Indication: CEREBROVASCULAR ACCIDENT
     Route: 048
     Dates: start: 201002, end: 20150428
  5. ASPIRIN. [Concomitant]
     Active Substance: ASPIRIN
  6. CLOPIDOGREL [Concomitant]
     Active Substance: CLOPIDOGREL BISULFATE

REACTIONS (3)
  - Myalgia [None]
  - Tremor [None]
  - Dysgraphia [None]

NARRATIVE: CASE EVENT DATE: 20150209
